FAERS Safety Report 12775521 (Version 2)
Quarter: 2016Q4

REPORT INFORMATION
  Report Type: Spontaneous
  Country: FR (occurrence: FR)
  Receive Date: 20160923
  Receipt Date: 20161003
  Transmission Date: 20170207
  Serious: Yes (Hospitalization)
  Sender: FDA-Public Use
  Company Number: PHHY2016FR129084

PATIENT
  Age: 61 Year
  Sex: Female
  Weight: 110 kg

DRUGS (4)
  1. PERINDOPRIL/INDAPAMIDE SANDOZ [Suspect]
     Active Substance: INDAPAMIDE\PERINDOPRIL
     Indication: HYPERTENSION
     Dosage: 1 DF, QD
     Route: 048
     Dates: end: 20160905
  2. ZOVIRAX [Suspect]
     Active Substance: ACYCLOVIR
     Indication: RADICULOPATHY
     Dosage: 3000 MG, QD
     Route: 042
     Dates: start: 20160901, end: 20160905
  3. ZELITREX [Concomitant]
     Active Substance: VALACYCLOVIR HYDROCHLORIDE
     Indication: PRODUCT USED FOR UNKNOWN INDICATION
     Dosage: 1 DF, TID
     Route: 048
     Dates: start: 20160829, end: 20160915
  4. PERINDOPRIL/INDAPAMIDE SANDOZ [Suspect]
     Active Substance: INDAPAMIDE\PERINDOPRIL
     Dosage: 1 DF, QD
     Route: 048

REACTIONS (7)
  - Areflexia [Unknown]
  - Decreased appetite [Unknown]
  - Acute kidney injury [Recovering/Resolving]
  - Pain [Unknown]
  - Motor dysfunction [Unknown]
  - Rash [Recovering/Resolving]
  - Weight decreased [Unknown]

NARRATIVE: CASE EVENT DATE: 20160815
